FAERS Safety Report 5016123-2 (Version None)
Quarter: 2006Q2

REPORT INFORMATION
  Report Type: 
  Country: None (occurrence: None)
  Receive Date: 20060414
  Receipt Date: 20060307
  Transmission Date: 20061013
  Serious: No
  Sender: FDA-Public Use
  Company Number: 2006SP001104

PATIENT
  Age: 65 Year
  Sex: Female
  Weight: 92.9874 kg

DRUGS (4)
  1. LUNESTA [Suspect]
     Indication: INSOMNIA
     Dosage: 2 MG HS ORAL
     Route: 048
     Dates: start: 20060225
  2. ATORVASTATIN CALCIUM [Concomitant]
  3. ESTRAFIO; [Concomitant]
  4. AMBIEN [Concomitant]

REACTIONS (3)
  - DRUG INEFFECTIVE [None]
  - MIDDLE INSOMNIA [None]
  - NASOPHARYNGITIS [None]
